FAERS Safety Report 19183853 (Version 2)
Quarter: 2021Q2

REPORT INFORMATION
  Report Type: Spontaneous
  Country: IT (occurrence: IT)
  Receive Date: 20210427
  Receipt Date: 20210504
  Transmission Date: 20210717
  Serious: Yes (Other)
  Sender: FDA-Public Use
  Company Number: IT-TEVA-2021-IT-1904155

PATIENT
  Age: 72 Year
  Sex: Female

DRUGS (1)
  1. CINACALCET DR. REDDY^S [Suspect]
     Active Substance: CINACALCET
     Dosage: 90 MG
     Route: 048
     Dates: start: 20210218, end: 20210221

REACTIONS (6)
  - Malaise [Unknown]
  - Product dispensing issue [Unknown]
  - Vertigo [Unknown]
  - Balance disorder [Unknown]
  - Vomiting [Unknown]
  - Asthenia [Unknown]

NARRATIVE: CASE EVENT DATE: 20210218
